FAERS Safety Report 8481120-1 (Version None)
Quarter: 2012Q3

REPORT INFORMATION
  Report Type: 
  Country: None (occurrence: None)
  Receive Date: 20120702
  Receipt Date: 20120626
  Transmission Date: 20120928
  Serious: No
  Sender: FDA-Public Use
  Company Number: PHEH2012US012556

PATIENT
  Sex: Male
  Weight: 73.923 kg

DRUGS (4)
  1. GILENYA [Suspect]
     Indication: MULTIPLE SCLEROSIS
     Dosage: 1 DF, QD
     Route: 048
     Dates: start: 20120420
  2. GILENYA [Suspect]
     Dosage: 1 DF, QD
     Route: 048
     Dates: start: 20120531, end: 20120619
  3. ALPRAZOLAM [Concomitant]
     Dosage: 1 MG, UNK
  4. SIMVASTATIN [Concomitant]
     Dosage: 20 MG, UNK

REACTIONS (3)
  - ELECTROCARDIOGRAM CHANGE [None]
  - CHEST DISCOMFORT [None]
  - HEART RATE IRREGULAR [None]
